FAERS Safety Report 5788424-1 (Version None)
Quarter: 2008Q2

REPORT INFORMATION
  Report Type: 
  Country: None (occurrence: None)
  Receive Date: 20080623
  Receipt Date: 20080609
  Transmission Date: 20081010
  Serious: Yes (Hospitalization)
  Sender: FDA-Public Use
  Company Number: 2008AL006747

PATIENT
  Age: 65 Year
  Sex: Female
  Weight: 113.3993 kg

DRUGS (8)
  1. DIGOXIN [Suspect]
     Indication: CARDIAC FIBRILLATION
     Dosage: 0.2MG, QD, PO
     Route: 048
     Dates: start: 20060201, end: 20080515
  2. PLAVIX [Concomitant]
  3. SYNTHROID [Concomitant]
  4. COUMADIN [Concomitant]
  5. METOPROLOL SUCCINATE [Concomitant]
  6. PREVACID [Concomitant]
  7. PREDNISONE 50MG TAB [Concomitant]
  8. EFFEXOR [Concomitant]

REACTIONS (2)
  - PALPITATIONS [None]
  - PERICARDITIS [None]
